FAERS Safety Report 13835794 (Version 1)
Quarter: 2017Q3

REPORT INFORMATION
  Report Type: Spontaneous
  Country: US (occurrence: US)
  Receive Date: 20170804
  Receipt Date: 20170804
  Transmission Date: 20171127
  Serious: No
  Sender: FDA-Public Use
  Company Number: US-TEVA-794361ACC

PATIENT
  Sex: Female
  Weight: 74.91 kg

DRUGS (1)
  1. TAKE ACTION [Suspect]
     Active Substance: LEVONORGESTREL
     Indication: POST COITAL CONTRACEPTION
     Dates: start: 20170721, end: 20170721

REACTIONS (1)
  - Vaginal haemorrhage [Recovered/Resolved]

NARRATIVE: CASE EVENT DATE: 20170728
